FAERS Safety Report 5322271-X (Version None)
Quarter: 2007Q2

REPORT INFORMATION
  Report Type: 
  Country: None (occurrence: None)
  Receive Date: 20070511
  Receipt Date: 20070508
  Transmission Date: 20071010
  Serious: Yes (Other)
  Sender: FDA-Public Use
  Company Number: A0650424A

PATIENT
  Sex: Male

DRUGS (1)
  1. ADVAIR DISKUS 100/50 [Suspect]
     Dates: start: 20061101

REACTIONS (3)
  - DYSPHONIA [None]
  - DYSPNOEA [None]
  - VISUAL ACUITY REDUCED [None]
